FAERS Safety Report 9776229 (Version 2)
Quarter: 2013Q4

REPORT INFORMATION
  Report Type: Report from Study
  Country: RU (occurrence: RU)
  Receive Date: 20131220
  Receipt Date: 20131220
  Transmission Date: 20140711
  Serious: Yes (Other)
  Sender: FDA-Public Use
  Company Number: RU-MERCK-1301RUS004869

PATIENT
  Age: 54 Year
  Sex: Female
  Weight: 59.8 kg

DRUGS (4)
  1. BOCEPREVIR [Suspect]
     Indication: CHRONIC HEPATITIS C
     Dosage: 800 MG, TID
     Route: 048
     Dates: start: 20120614, end: 20130120
  2. PEGINTRON [Suspect]
     Indication: CHRONIC HEPATITIS C
     Dosage: 120 MCG 0.4 ML ONCE WEEKLY (DOSE AT ONSET OF EVENT 96 MCG/WEEK
     Route: 058
     Dates: start: 20120514, end: 20130117
  3. PEGINTRON [Suspect]
     Dosage: 72 MICROGRAM, QW
     Route: 058
     Dates: start: 20130104, end: 20130120
  4. RIBAVIRIN [Suspect]
     Indication: CHRONIC HEPATITIS C
     Dosage: 400 MG, BID
     Route: 048
     Dates: start: 20120514, end: 20130120

REACTIONS (1)
  - Neutropenia [Recovered/Resolved]
